FAERS Safety Report 6468813-2 (Version None)
Quarter: 2009Q4

REPORT INFORMATION
  Report Type: 
  Country: None (occurrence: None)
  Receive Date: 20091203
  Receipt Date: 20090709
  Transmission Date: 20100525
  Serious: Yes (Other)
  Sender: FDA-Public Use
  Company Number: US-ELI_LILLY_AND_COMPANY-US200602002459

PATIENT
  Sex: Female
  Weight: 70.294 kg

DRUGS (9)
  1. ZYPREXA [Suspect]
     Indication: DEPRESSION
     Dosage: 5 MG, UNK
     Route: 048
     Dates: start: 20000106
  2. ZYPREXA [Suspect]
     Dosage: 10 MG, UNK
     Dates: start: 20001130
  3. ZYPREXA [Suspect]
     Dosage: 15 MG, UNK
     Dates: start: 20001222
  4. ZYPREXA [Suspect]
     Dosage: 10 MG, UNK
     Dates: start: 20010120
  5. ZYPREXA [Suspect]
     Dosage: 20 MG, UNK
     Dates: start: 20040713
  6. AMITRIPTYLINE [Concomitant]
     Dosage: 100 MG, UNK
  7. DOXEPIN HCL [Concomitant]
     Dosage: 100 MG, UNK
  8. PREDNISONE [Concomitant]
     Dosage: 20 MG, UNK
  9. FLUOXETINE [Concomitant]
     Dosage: 20 MG, UNK

REACTIONS (11)
  - BLOOD CHOLESTEROL INCREASED [None]
  - BLOOD TRIGLYCERIDES INCREASED [None]
  - HAEMATOCHEZIA [None]
  - HAEMATOCRIT INCREASED [None]
  - HEPATITIS A [None]
  - HIGH DENSITY LIPOPROTEIN DECREASED [None]
  - LOW DENSITY LIPOPROTEIN INCREASED [None]
  - NEUTROPHIL COUNT INCREASED [None]
  - OFF LABEL USE [None]
  - TYPE 2 DIABETES MELLITUS [None]
  - WHITE BLOOD CELL COUNT INCREASED [None]
